FAERS Safety Report 8827799 (Version 1)
Quarter: 2012Q4

REPORT INFORMATION
  Report Type: 
  Country: US (occurrence: US)
  Receive Date: 20121008
  Receipt Date: 20121008
  Transmission Date: 20130627
  Serious: No
  Sender: FDA-Public Use
  Company Number: US-PFIZER INC-2012245197

PATIENT
  Age: 62 Year
  Sex: Male
  Weight: 74.83 kg

DRUGS (1)
  1. CELEBREX [Suspect]
     Indication: GROIN PAIN
     Dosage: 100 mg, single
     Route: 048
     Dates: start: 20121002, end: 20121002

REACTIONS (7)
  - Hypoaesthesia [Unknown]
  - Depression [Unknown]
  - Nervousness [Unknown]
  - Depressed mood [Unknown]
  - Feeling abnormal [Unknown]
  - Fatigue [Unknown]
  - Activities of daily living impaired [Unknown]
